FAERS Safety Report 6393667-2 (Version None)
Quarter: 2009Q4

REPORT INFORMATION
  Report Type: 
  Country: None (occurrence: None)
  Receive Date: 20091008
  Receipt Date: 20090925
  Transmission Date: 20100525
  Serious: Yes (Other)
  Sender: FDA-Public Use
  Company Number: FI-PFIZER INC-2009273926

PATIENT

DRUGS (1)
  1. LYRICA [Suspect]
     Dosage: UNK
     Dates: start: 20080101, end: 20080101

REACTIONS (2)
  - MANIA [None]
  - PSYCHOMOTOR HYPERACTIVITY [None]
